FAERS Safety Report 8433865-7 (Version None)
Quarter: 2012Q2

REPORT INFORMATION
  Report Type: 
  Country: None (occurrence: None)
  Receive Date: 20120613
  Receipt Date: 20120608
  Transmission Date: 20120825
  Serious: Yes (Hospitalization)
  Sender: FDA-Public Use
  Company Number: FR-PFIZER INC-2012137768

PATIENT
  Age: 77 Year
  Sex: Female

DRUGS (10)
  1. TROSPIUM CHLORIDE [Concomitant]
  2. ALDACTONE [Suspect]
     Dosage: 50 MG, DAILY
     Route: 048
     Dates: start: 20000101, end: 20120427
  3. VALSARTAN [Suspect]
     Dosage: 160 MG, DAILY
     Route: 048
     Dates: start: 20000101, end: 20120427
  4. FOLIC ACID [Concomitant]
  5. POLYETHYLENE GLYCOL [Concomitant]
  6. FUROSEMIDE [Suspect]
     Dosage: 40 MG, DAILY
     Dates: start: 20120301, end: 20120427
  7. DEBRIDAT [Concomitant]
  8. ZOLPIDEM [Concomitant]
  9. DILTIAZEM HCL [Suspect]
     Dosage: 30 MG, DAILY
     Route: 048
     Dates: start: 19990101, end: 20120427
  10. ATORVASTATIN [Concomitant]

REACTIONS (3)
  - RENAL FAILURE ACUTE [None]
  - SINUS BRADYCARDIA [None]
  - HYPERKALAEMIA [None]
